FAERS Safety Report 9998969 (Version 3)
Quarter: 2014Q2

REPORT INFORMATION
  Report Type: Spontaneous
  Country: JP (occurrence: JP)
  Receive Date: 20140312
  Receipt Date: 20140409
  Transmission Date: 20141212
  Serious: Yes (Hospitalization, Other)
  Sender: FDA-Public Use
  Company Number: JP-ROCHE-1359848

PATIENT
  Age: 83 Year
  Sex: Male
  Weight: 50 kg

DRUGS (9)
  1. TAMIFLU [Suspect]
     Indication: INFLUENZA
     Route: 048
     Dates: start: 20140222, end: 20140226
  2. GENINAX [Suspect]
     Indication: PNEUMONIA
     Dosage: FORMULA FOR SIX DAYS
     Route: 048
     Dates: start: 20140222, end: 20140227
  3. SODIUM BICARBONATE [Concomitant]
     Indication: RENAL FAILURE CHRONIC
     Route: 048
  4. VESICARE [Concomitant]
     Indication: HYPERTONIC BLADDER
     Route: 048
  5. AVAPRO [Concomitant]
     Indication: RENAL FAILURE CHRONIC
     Route: 048
  6. THYRADIN [Concomitant]
     Indication: HYPOTHYROIDISM
     Route: 048
  7. DIART [Concomitant]
     Indication: RENAL FAILURE CHRONIC
     Route: 048
  8. AMLODIPIN [Concomitant]
     Indication: HYPERTENSION
     Route: 048
  9. LASIX [Concomitant]
     Indication: HYPERTENSION
     Route: 048

REACTIONS (3)
  - Acute hepatic failure [Recovering/Resolving]
  - Cardiac failure acute [Recovering/Resolving]
  - Renal failure acute [Recovering/Resolving]
